FAERS Safety Report 12913481 (Version 1)
Quarter: 2016Q4

REPORT INFORMATION
  Report Type: Spontaneous
  Country: IL (occurrence: IL)
  Receive Date: 20161104
  Receipt Date: 20161104
  Transmission Date: 20170207
  Serious: Yes (Hospitalization, Other)
  Sender: FDA-Public Use
  Company Number: IL-ASTRAZENECA-2016SF14567

PATIENT
  Sex: Female

DRUGS (7)
  1. OMEPRADEX [Concomitant]
     Active Substance: OMEPRAZOLE
  2. ELATROL [Concomitant]
  3. TARGIN [Concomitant]
     Active Substance: NALOXONE HYDROCHLORIDE\OXYCODONE HYDROCHLORIDE
  4. STEROID [Concomitant]
     Active Substance: UNSPECIFIED INGREDIENT
  5. CLEXANE [Concomitant]
     Active Substance: ENOXAPARIN SODIUM
  6. LYNPARZA [Suspect]
     Active Substance: OLAPARIB
     Indication: BREAST CANCER FEMALE
     Route: 048
  7. RISPERDAL [Concomitant]
     Active Substance: RISPERIDONE

REACTIONS (6)
  - Hypercoagulation [Unknown]
  - Intentional product misuse [Unknown]
  - Wheezing [Unknown]
  - Pharyngeal oedema [Unknown]
  - Infection [Unknown]
  - Oropharyngeal pain [Unknown]

NARRATIVE: CASE EVENT DATE: 20161020
